FAERS Safety Report 23040110 (Version 1)
Quarter: 2023Q4

REPORT INFORMATION
  Report Type: Spontaneous
  Country: US (occurrence: None)
  Receive Date: 20231006
  Receipt Date: 20231006
  Transmission Date: 20240110
  Serious: No
  Sender: FDA-Public Use
  Company Number: None

PATIENT
  Age: 11 Year
  Sex: Female

DRUGS (1)
  1. HUMIRA [Suspect]
     Active Substance: ADALIMUMAB
     Indication: Crohn^s disease
     Dosage: OTHER FREQUENCY : OTHER;?
     Route: 058
     Dates: start: 20231006

REACTIONS (2)
  - Drug level decreased [None]
  - Off label use [None]

NARRATIVE: CASE EVENT DATE: 20231006
